FAERS Safety Report 8581880-5 (Version None)
Quarter: 2012Q3

REPORT INFORMATION
  Report Type: 
  Country: None (occurrence: None)
  Receive Date: 20120809
  Receipt Date: 20120803
  Transmission Date: 20120928
  Serious: Yes (Hospitalization)
  Sender: FDA-Public Use
  Company Number: US-JNJFOC-20110711134

PATIENT
  Sex: Female
  Weight: 56.8 kg

DRUGS (2)
  1. CISAPRIDE [Suspect]
     Indication: GASTROINTESTINAL MOTILITY DISORDER
     Route: 048
     Dates: start: 20110714, end: 20110721
  2. CISAPRIDE [Suspect]
     Indication: GASTROOESOPHAGEAL REFLUX DISEASE
     Route: 048
     Dates: start: 20110714, end: 20110721

REACTIONS (1)
  - ELECTROCARDIOGRAM QT PROLONGED [None]
